FAERS Safety Report 23322177 (Version 1)
Quarter: 2023Q4

REPORT INFORMATION
  Report Type: Spontaneous
  Country: AU (occurrence: AU)
  Receive Date: 20231220
  Receipt Date: 20231220
  Transmission Date: 20240110
  Serious: Yes (Other)
  Sender: FDA-Public Use
  Company Number: AU-PFIZER INC-PV202300202936

PATIENT
  Sex: Female

DRUGS (3)
  1. XELJANZ [Suspect]
     Active Substance: TOFACITINIB CITRATE
  2. HUMIRA [Suspect]
     Active Substance: ADALIMUMAB
  3. SULFASALAZINE [Concomitant]
     Active Substance: SULFASALAZINE
     Dosage: UNK

REACTIONS (7)
  - Hodgkin^s disease [Unknown]
  - Thymoma [Recovered/Resolved with Sequelae]
  - Lymphoma [Recovered/Resolved with Sequelae]
  - Drug ineffective [Unknown]
  - Cough [Recovered/Resolved with Sequelae]
  - Mass [Recovered/Resolved with Sequelae]
  - Inflammation [Recovered/Resolved with Sequelae]

NARRATIVE: CASE EVENT DATE: 20220901
